FAERS Safety Report 10764082 (Version 2)
Quarter: 2016Q1

REPORT INFORMATION
  Report Type: Other
  Country: US (occurrence: US)
  Receive Date: 20150204
  Receipt Date: 20160217
  Transmission Date: 20160525
  Serious: Yes (Hospitalization, Disabling)
  Sender: FDA-Public Use
  Company Number: US-ACORDA-ACO_102099_2014

PATIENT
  Age: 63 Year
  Sex: Female
  Weight: 53.61 kg

DRUGS (33)
  1. AMPYRA [Suspect]
     Active Substance: DALFAMPRIDINE
     Indication: MULTIPLE SCLEROSIS
     Dosage: 10 MG, BID
     Route: 048
     Dates: start: 20130919, end: 20140818
  2. AMPYRA [Suspect]
     Active Substance: DALFAMPRIDINE
     Dosage: UNK
  3. MUCINEX [Concomitant]
     Active Substance: GUAIFENESIN
     Dosage: UNK
     Route: 065
  4. MECLIZINE HCL [Concomitant]
     Dosage: UNK
     Route: 065
     Dates: start: 20141021
  5. AMPYRA [Suspect]
     Active Substance: DALFAMPRIDINE
     Indication: GAIT DISTURBANCE
     Dosage: 10MG BID
  6. NEOMYCIN W/POLYMYCIN B/HYDROCORTISONE [Concomitant]
     Indication: PRODUCT USED FOR UNKNOWN INDICATION
     Dosage: UNK
     Route: 065
  7. IBUPROFEN. [Concomitant]
     Active Substance: IBUPROFEN
     Indication: PRODUCT USED FOR UNKNOWN INDICATION
     Dosage: 600 MG, UNK
     Route: 065
  8. AMOXICILLIN. [Concomitant]
     Active Substance: AMOXICILLIN
     Indication: PRODUCT USED FOR UNKNOWN INDICATION
     Dosage: 500 MG, UNK
     Route: 065
  9. VICKS SINEX+ULTRA FINE MIST FOR SINUS RELIEF [Concomitant]
     Indication: PRODUCT USED FOR UNKNOWN INDICATION
     Dosage: 0.05%, UNK
     Route: 065
  10. MECLIZINE HCL [Concomitant]
     Indication: PRODUCT USED FOR UNKNOWN INDICATION
     Dosage: 25 MG, UNK
     Route: 065
     Dates: start: 2011
  11. AMOX+AC CLAV SAN [Concomitant]
     Indication: PRODUCT USED FOR UNKNOWN INDICATION
  12. WAL PHED PE [Concomitant]
     Indication: PRODUCT USED FOR UNKNOWN INDICATION
     Dosage: 30MG, UNK
     Route: 065
  13. CEPHALEXIN. [Concomitant]
     Active Substance: CEPHALEXIN
     Indication: PRODUCT USED FOR UNKNOWN INDICATION
  14. MONTELUKAST [Concomitant]
     Active Substance: MONTELUKAST SODIUM
     Indication: PRODUCT USED FOR UNKNOWN INDICATION
     Route: 065
  15. AMPYRA [Suspect]
     Active Substance: DALFAMPRIDINE
     Dosage: 10 MG, Q 12 HRS
     Route: 048
     Dates: start: 20130919, end: 20150704
  16. AZELASTINE HYDROCHLORIDE. [Concomitant]
     Active Substance: AZELASTINE HYDROCHLORIDE
     Indication: PRODUCT USED FOR UNKNOWN INDICATION
     Dosage: 0.1%, UNK
     Route: 065
  17. NAPROXEN. [Concomitant]
     Active Substance: NAPROXEN
     Indication: PRODUCT USED FOR UNKNOWN INDICATION
     Dosage: 250 MG, UNK
     Route: 065
  18. EPINASTINE [Concomitant]
     Active Substance: EPINASTINE
     Indication: PRODUCT USED FOR UNKNOWN INDICATION
  19. CIPROFLOXACIN. [Concomitant]
     Active Substance: CIPROFLOXACIN
     Indication: PRODUCT USED FOR UNKNOWN INDICATION
     Route: 065
  20. PREDNISONE. [Concomitant]
     Active Substance: PREDNISONE
     Indication: PRODUCT USED FOR UNKNOWN INDICATION
     Route: 065
  21. CEFDINIR. [Concomitant]
     Active Substance: CEFDINIR
     Indication: PRODUCT USED FOR UNKNOWN INDICATION
     Dosage: 300 MG, UNK
     Route: 065
  22. IPRATROPIUM [Concomitant]
     Active Substance: IPRATROPIUM
     Indication: PRODUCT USED FOR UNKNOWN INDICATION
     Route: 065
  23. AZITHROMYCIN ANHYDROUS. [Concomitant]
     Active Substance: AZITHROMYCIN ANHYDROUS
     Indication: PRODUCT USED FOR UNKNOWN INDICATION
     Route: 065
  24. AMPYRA [Suspect]
     Active Substance: DALFAMPRIDINE
     Dosage: UNK
  25. MULTIVITAMINS [Concomitant]
     Active Substance: VITAMINS
     Indication: PRODUCT USED FOR UNKNOWN INDICATION
     Dosage: UNK
     Route: 065
  26. FLUTICASONE [Concomitant]
     Active Substance: FLUTICASONE\FLUTICASONE PROPIONATE
     Indication: PRODUCT USED FOR UNKNOWN INDICATION
     Dosage: 50 MCG, UNK
     Route: 065
  27. LOVASTATIN. [Concomitant]
     Active Substance: LOVASTATIN
     Indication: PRODUCT USED FOR UNKNOWN INDICATION
     Dosage: 20 MG, Q PM
     Route: 065
  28. ALLEGRA [Concomitant]
     Active Substance: FEXOFENADINE HYDROCHLORIDE
     Indication: PRODUCT USED FOR UNKNOWN INDICATION
     Dosage: 180 MG, UNK
     Route: 065
  29. AMPYRA [Suspect]
     Active Substance: DALFAMPRIDINE
     Dosage: 10 UNK, UNK
  30. AMPYRA [Suspect]
     Active Substance: DALFAMPRIDINE
     Dosage: UNK
  31. KETOTIFEN [Concomitant]
     Active Substance: KETOTIFEN
     Indication: PRODUCT USED FOR UNKNOWN INDICATION
  32. AZELASTINE [Concomitant]
     Active Substance: AZELASTINE
     Indication: PRODUCT USED FOR UNKNOWN INDICATION
     Route: 065
  33. ZYRTEC [Concomitant]
     Active Substance: CETIRIZINE HYDROCHLORIDE
     Indication: PRODUCT USED FOR UNKNOWN INDICATION
     Dosage: UNK
     Route: 065

REACTIONS (24)
  - Seasonal allergy [Not Recovered/Not Resolved]
  - Fatigue [Not Recovered/Not Resolved]
  - Drug effect decreased [Unknown]
  - Headache [Not Recovered/Not Resolved]
  - Urinary tract infection [Unknown]
  - Head discomfort [Not Recovered/Not Resolved]
  - Middle insomnia [Not Recovered/Not Resolved]
  - Sinusitis [Not Recovered/Not Resolved]
  - Sinusitis [Not Recovered/Not Resolved]
  - Asthenia [Not Recovered/Not Resolved]
  - Balance disorder [Not Recovered/Not Resolved]
  - Lower limb fracture [Recovered/Resolved]
  - Fall [Unknown]
  - Ear infection [Recovered/Resolved]
  - Wheelchair user [Unknown]
  - Cystitis [Unknown]
  - Therapy cessation [Unknown]
  - Confusional state [Unknown]
  - Dizziness [Not Recovered/Not Resolved]
  - Drug dose omission [Unknown]
  - Urinary tract infection [Unknown]
  - Feeling abnormal [Not Recovered/Not Resolved]
  - Inappropriate schedule of drug administration [Unknown]
  - Drug dose omission [Unknown]

NARRATIVE: CASE EVENT DATE: 20131107
